FAERS Safety Report 7754279-9 (Version None)
Quarter: 2011Q3

REPORT INFORMATION
  Report Type: 
  Country: None (occurrence: None)
  Receive Date: 20110915
  Receipt Date: 20110906
  Transmission Date: 20111222
  Serious: Yes (Hospitalization, Other)
  Sender: FDA-Public Use
  Company Number: US-ELI_LILLY_AND_COMPANY-US201001003878

PATIENT
  Sex: Female

DRUGS (4)
  1. CYTOMEL [Concomitant]
  2. AMARYL [Concomitant]
     Dosage: 4 DF, UNKNOWN
  3. GLYSET [Concomitant]
  4. BYETTA [Suspect]
     Dosage: 5 UG, BID
     Route: 065
     Dates: start: 20081001, end: 20090701

REACTIONS (3)
  - PANCREATITIS ACUTE [None]
  - PANCREATIC PSEUDOCYST [None]
  - PANCREATITIS NECROTISING [None]
